FAERS Safety Report 9441139 (Version 1)
Quarter: 2013Q3

REPORT INFORMATION
  Report Type: Spontaneous
  Country: FR (occurrence: FR)
  Receive Date: 20130805
  Receipt Date: 20130805
  Transmission Date: 20140515
  Serious: Yes (Hospitalization)
  Sender: FDA-Public Use
  Company Number: FR-GLAXOSMITHKLINE-B0913011A

PATIENT
  Age: 62 Year
  Sex: Male

DRUGS (4)
  1. CEFUROXIME AXETIL [Suspect]
     Indication: PROSTATITIS
     Route: 048
     Dates: start: 20130715
  2. CIPROFLOXACINE [Suspect]
     Indication: PROSTATITIS
     Dosage: 500MG TWICE PER DAY
     Route: 048
     Dates: start: 20130711, end: 20130715
  3. XATRAL [Concomitant]
  4. XALATAN [Concomitant]

REACTIONS (1)
  - Guillain-Barre syndrome [Not Recovered/Not Resolved]
